FAERS Safety Report 9310706 (Version 1)
Quarter: 2013Q2

REPORT INFORMATION
  Report Type: Spontaneous
  Country: FR (occurrence: FR)
  Receive Date: 20130527
  Receipt Date: 20130527
  Transmission Date: 20140414
  Serious: Yes (Other)
  Sender: FDA-Public Use
  Company Number: FR-BRISTOL-MYERS SQUIBB COMPANY-18909390

PATIENT
  Age: 39 Year
  Sex: Male

DRUGS (2)
  1. ORENCIA FOR INJ 250 MG/VIAL [Suspect]
     Indication: RHEUMATOID ARTHRITIS
     Dosage: RECEIVED 17 INFUSIONS
  2. METHOTREXATE [Suspect]

REACTIONS (2)
  - Hepatocellular injury [Unknown]
  - Orchitis [Unknown]
